FAERS Safety Report 5104723-0 (Version None)
Quarter: 2006Q3

REPORT INFORMATION
  Report Type: 
  Country: None (occurrence: None)
  Receive Date: 20060731
  Receipt Date: 20050620
  Transmission Date: 20061208
  Serious: Yes (Hospitalization)
  Sender: FDA-Public Use
  Company Number: US-JNJFOC-20050503540

PATIENT
  Age: 58 Year
  Sex: Male

DRUGS (3)
  1. RISPERDAL [Suspect]
     Indication: BIPOLAR I DISORDER
     Dosage: 4 MG, 1 IN 1 DAY, ORAL
     Route: 048
     Dates: start: 20050501
  2. VALIUM [Concomitant]
  3. DEPAKOTE (TABLETS) VALPROATE SEMISODIUM [Concomitant]

REACTIONS (2)
  - ERECTILE DYSFUNCTION [None]
  - MANIA [None]
